FAERS Safety Report 6319416-1 (Version None)
Quarter: 2009Q3

REPORT INFORMATION
  Report Type: 
  Country: None (occurrence: None)
  Receive Date: 20090822
  Receipt Date: 20080905
  Transmission Date: 20100115
  Serious: No
  Sender: FDA-Public Use
  Company Number: US-ABBOTT-08P-163-0474461-00

PATIENT
  Sex: Male

DRUGS (2)
  1. NIASPAN [Suspect]
     Indication: HIGH DENSITY LIPOPROTEIN DECREASED
     Route: 048
     Dates: start: 20050101
  2. PENTOSAN POLYSULFATE SODIUM [Concomitant]
     Indication: BLADDER DISORDER
     Route: 048

REACTIONS (3)
  - FLUSHING [None]
  - MEDICATION RESIDUE [None]
  - PRURITUS [None]
